FAERS Safety Report 9882638 (Version 2)
Quarter: 2014Q2

REPORT INFORMATION
  Report Type: Report from Study
  Country: DE (occurrence: DE)
  Receive Date: 20140207
  Receipt Date: 20140403
  Transmission Date: 20141212
  Serious: Yes (Hospitalization)
  Sender: FDA-Public Use
  Company Number: DE-CELGENEUS-062-21660-14014608

PATIENT
  Age: 60 Year
  Sex: Female
  Weight: 58.5 kg

DRUGS (6)
  1. ABRAXANE [Suspect]
     Indication: BREAST CANCER
     Dosage: 197 MILLIGRAM
     Route: 041
     Dates: start: 20131202, end: 20140120
  2. ABRAXANE [Suspect]
     Dosage: 197 MILLIGRAM
     Route: 041
     Dates: start: 20140203
  3. EPIRUBICIN [Suspect]
     Indication: BREAST CANCER
     Route: 041
     Dates: end: 20140127
  4. EPIRUBICIN [Suspect]
     Route: 041
     Dates: start: 20140203
  5. CYCLOPHOSPHAMIDE [Suspect]
     Indication: BREAST CANCER
     Route: 041
     Dates: end: 20140127
  6. CYCLOPHOSPHAMIDE [Suspect]
     Route: 041
     Dates: start: 20140203

REACTIONS (1)
  - Mastitis [Recovered/Resolved]
